FAERS Safety Report 5418427-8 (Version None)
Quarter: 2007Q4

REPORT INFORMATION
  Report Type: 
  Country: None (occurrence: None)
  Receive Date: 20070718
  Receipt Date: 20060830
  Transmission Date: 20080405
  Serious: Yes (Hospitalization, Other)
  Sender: FDA-Public Use
  Company Number: 2005161466

PATIENT
  Age: 65 Year
  Sex: Female
  Weight: 68.0396 kg

DRUGS (3)
  1. CELEBREX [Suspect]
     Indication: PAIN
  2. BEXTRA [Suspect]
     Indication: BACK PAIN
     Dosage: 20 MG, 1 IN D
     Dates: start: 20040325, end: 20040901
  3. VIOXX [Suspect]
     Indication: ILL-DEFINED DISORDER

REACTIONS (1)
  - EMBOLISM [None]
